FAERS Safety Report 4957704-1 (Version None)
Quarter: 2006Q1

REPORT INFORMATION
  Report Type: 
  Country: None (occurrence: None)
  Receive Date: 20060324
  Receipt Date: 20060315
  Transmission Date: 20060701
  Serious: Yes (Hospitalization)
  Sender: FDA-Public Use
  Company Number: HQWYE355316MAR06

PATIENT
  Age: 26 Year
  Sex: Male
  Weight: 101.5 kg

DRUGS (5)
  1. MYLOTARG [Suspect]
     Indication: ACUTE MYELOID LEUKAEMIA
     Dosage: 14 MG 1X PER 1 DAY, INTRAVENOUS
     Route: 042
     Dates: start: 20041123, end: 20041123
  2. BUSULFAN (BUSULFAN, ) [Suspect]
  3. ARA-C (CYTARBINE) [Concomitant]
  4. DAUNOMYCIN (DAUNORUBICIN) [Concomitant]
  5. NEUPOGEN [Concomitant]

REACTIONS (6)
  - ABDOMINAL PAIN [None]
  - ALANINE AMINOTRANSFERASE INCREASED [None]
  - BACTERAEMIA [None]
  - LETHARGY [None]
  - NAUSEA [None]
  - VENOOCCLUSIVE LIVER DISEASE [None]
